FAERS Safety Report 16655170 (Version 1)
Quarter: 2019Q3

REPORT INFORMATION
  Report Type: Spontaneous
  Country: CA (occurrence: CA)
  Receive Date: 20190801
  Receipt Date: 20190801
  Transmission Date: 20191004
  Serious: Yes (Other)
  Sender: FDA-Public Use
  Company Number: CA-TEVA-2019-CA-1084621

PATIENT
  Age: 71 Year
  Sex: Male

DRUGS (4)
  1. RITONAVIR. [Concomitant]
     Active Substance: RITONAVIR
  2. TEVA-ATAZANAVIR [Suspect]
     Active Substance: ATAZANAVIR
     Indication: HIV INFECTION
     Route: 048
  3. LAMIVUDINE. [Concomitant]
     Active Substance: LAMIVUDINE
  4. ABACAVIR. [Concomitant]
     Active Substance: ABACAVIR

REACTIONS (4)
  - Constipation [Unknown]
  - Medical diet [Unknown]
  - Nausea [Unknown]
  - Impaired quality of life [Unknown]
